FAERS Safety Report 18706066 (Version 1)
Quarter: 2021Q1

REPORT INFORMATION
  Report Type: Spontaneous
  Country: US (occurrence: US)
  Receive Date: 20210105
  Receipt Date: 20210105
  Transmission Date: 20210419
  Serious: Yes (Other)
  Sender: FDA-Public Use
  Company Number: None

PATIENT
  Age: 54 Year
  Sex: Female
  Weight: 60.3 kg

DRUGS (18)
  1. PROLIA [Suspect]
     Active Substance: DENOSUMAB
     Indication: OSTEOPOROSIS
     Dosage: ?          QUANTITY:1 INJECTION(S);?
     Route: 058
     Dates: start: 20201130
  2. METOPROLOL. [Concomitant]
     Active Substance: METOPROLOL
  3. AZITHROMYCIN ANHYDROUS. [Concomitant]
     Active Substance: AZITHROMYCIN ANHYDROUS
  4. MAGNESIUM [Concomitant]
     Active Substance: MAGNESIUM
  5. SPIRIVA [Concomitant]
     Active Substance: TIOTROPIUM BROMIDE MONOHYDRATE
  6. VIT. D [Concomitant]
     Active Substance: VITAMIN D NOS
  7. TIZANIDINE. [Concomitant]
     Active Substance: TIZANIDINE
  8. EVOXAC [Concomitant]
     Active Substance: CEVIMELINE HYDROCHLORIDE
  9. WIXELA INHUB [Concomitant]
     Active Substance: FLUTICASONE PROPIONATE\SALMETEROL XINAFOATE
  10. POTASSIUM [Concomitant]
     Active Substance: POTASSIUM
  11. IBUPROFEN. [Concomitant]
     Active Substance: IBUPROFEN
  12. IVIG INFUSION [Concomitant]
     Active Substance: HUMAN IMMUNOGLOBULIN G
  13. PREVACID [Concomitant]
     Active Substance: LANSOPRAZOLE
  14. ESTRADIOL. [Concomitant]
     Active Substance: ESTRADIOL
  15. DALIRESP [Concomitant]
     Active Substance: ROFLUMILAST
  16. PLAQUENIL [Concomitant]
     Active Substance: HYDROXYCHLOROQUINE SULFATE
  17. LYRICA [Concomitant]
     Active Substance: PREGABALIN
  18. FERROUS SULF [Concomitant]
     Active Substance: FERROUS SULFATE

REACTIONS (6)
  - Pain in jaw [None]
  - Dyspnoea [None]
  - Headache [None]
  - Palpitations [None]
  - Aphthous ulcer [None]
  - Hypotension [None]

NARRATIVE: CASE EVENT DATE: 20201130
